FAERS Safety Report 13886097 (Version 3)
Quarter: 2017Q4

REPORT INFORMATION
  Report Type: Report from Study
  Country: PA (occurrence: PA)
  Receive Date: 20170821
  Receipt Date: 20171121
  Transmission Date: 20180320
  Serious: No
  Sender: FDA-Public Use
  Company Number: PHHY2015PA114545

PATIENT
  Age: 50 Year
  Sex: Male

DRUGS (1)
  1. TASIGNA [Suspect]
     Active Substance: NILOTINIB
     Indication: CHRONIC MYELOID LEUKAEMIA
     Dosage: 200 MG IN A.M., ORALLY AND 100 MG AT P.M.
     Route: 048

REACTIONS (9)
  - Asthenia [Recovered/Resolved]
  - Back pain [Unknown]
  - Pruritus [Recovered/Resolved]
  - Arthralgia [Unknown]
  - Spinal pain [Unknown]
  - Pain in extremity [Unknown]
  - Abdominal discomfort [Recovered/Resolved]
  - Rash [Unknown]
  - Apathy [Unknown]
